FAERS Safety Report 22260090 (Version 1)
Quarter: 2023Q2

REPORT INFORMATION
  Report Type: Spontaneous
  Country: US (occurrence: US)
  Receive Date: 20230427
  Receipt Date: 20230427
  Transmission Date: 20230722
  Serious: No
  Sender: FDA-Public Use
  Company Number: US-MYOVANT SCIENCES GMBH-2023MYSCI0200497

PATIENT
  Sex: Male

DRUGS (3)
  1. ORGOVYX [Suspect]
     Active Substance: RELUGOLIX
     Indication: Prostate cancer
     Dosage: 360 MILLIGRAM, QD
     Route: 048
     Dates: start: 20230211, end: 20230211
  2. ORGOVYX [Suspect]
     Active Substance: RELUGOLIX
     Dosage: 120 MILLIGRAM, QD
     Route: 048
     Dates: start: 20230212
  3. ORGOVYX [Suspect]
     Active Substance: RELUGOLIX
     Dosage: UNK
     Route: 065

REACTIONS (12)
  - Vertigo [Not Recovered/Not Resolved]
  - Anxiety [Unknown]
  - Weight decreased [Unknown]
  - Muscle atrophy [Unknown]
  - Head discomfort [Unknown]
  - Hypertension [Unknown]
  - Groin pain [Unknown]
  - Abdominal pain upper [Unknown]
  - Back pain [Unknown]
  - Libido decreased [Unknown]
  - Diarrhoea [Unknown]
  - Pain in extremity [Unknown]
